FAERS Safety Report 6881841-8 (Version None)
Quarter: 2010Q3

REPORT INFORMATION
  Report Type: 
  Country: None (occurrence: None)
  Receive Date: 20100729
  Receipt Date: 20100715
  Transmission Date: 20110219
  Serious: Yes (Hospitalization)
  Sender: FDA-Public Use
  Company Number: FR-WYE-H16261610

PATIENT
  Sex: Female

DRUGS (13)
  1. PANTOPRAZOLE SODIUM [Suspect]
     Route: 048
     Dates: end: 20091025
  2. PANTOPRAZOLE SODIUM [Suspect]
     Dosage: RESUMED THERAPY AT AN UNKNOWN DOSE
     Dates: start: 20091031
  3. TINSET [Suspect]
     Route: 048
     Dates: end: 20091025
  4. CITALOPRAM [Suspect]
     Indication: DEPRESSION
     Route: 048
     Dates: start: 20090101, end: 20091025
  5. CITALOPRAM [Suspect]
     Indication: ANXIETY
     Dosage: RESUMED THERAPY AT AN UNKNOWN DOSE
     Dates: start: 20091031
  6. ALDALIX [Concomitant]
     Indication: HYPERTENSION
     Route: 048
     Dates: end: 20091024
  7. PLAVIX [Concomitant]
     Indication: CEREBROVASCULAR ACCIDENT
     Dosage: UNKNOWN
     Route: 048
  8. KARDEGIC [Concomitant]
     Indication: CEREBROVASCULAR ACCIDENT
     Dosage: UNKNOWN
     Route: 048
  9. VASTAREL [Concomitant]
     Route: 048
     Dates: end: 20091025
  10. CLONAZEPAM [Concomitant]
     Route: 048
  11. MEMANTINE HCL [Suspect]
     Indication: DEMENTIA ALZHEIMER'S TYPE
     Route: 048
     Dates: start: 20090101, end: 20091025
  12. MEMANTINE HCL [Suspect]
     Indication: DEPRESSION
     Dosage: RESUMED THERAPY AT AN UNKNOWN DOSE
     Dates: start: 20091031
  13. ATACAND [Suspect]
     Indication: HYPERTENSION
     Route: 048
     Dates: end: 20091024

REACTIONS (1)
  - HYPONATRAEMIA [None]
